FAERS Safety Report 5736256-2 (Version None)
Quarter: 2008Q2

REPORT INFORMATION
  Report Type: 
  Country: None (occurrence: None)
  Receive Date: 20080513
  Receipt Date: 20080507
  Transmission Date: 20081010
  Serious: Yes (Disabling)
  Sender: FDA-Public Use
  Company Number: US-MERCK-98120211

PATIENT
  Age: 71 Year
  Sex: Female
  Weight: 64 kg

DRUGS (14)
  1. FOSAMAX [Suspect]
     Indication: OSTEOPOROSIS
     Route: 048
     Dates: start: 19950101, end: 19981201
  2. FOSAMAX [Suspect]
     Route: 048
  3. FOSAMAX [Suspect]
     Route: 048
     Dates: start: 19950101
  4. PREMARIN [Concomitant]
     Route: 065
  5. B VITAMINS [Concomitant]
     Route: 065
  6. ASCORBIC ACID [Concomitant]
     Route: 065
  7. VITAMIN E [Concomitant]
     Route: 065
  8. ZINC PREPARATION (COMPOSITION UNSPECIFIED) [Concomitant]
     Route: 065
  9. TOPROL-XL [Concomitant]
     Route: 065
  10. MONOPRIL [Concomitant]
     Route: 065
  11. DIAZIDE [Concomitant]
     Route: 065
  12. CALCIUM (UNSPECIFIED) [Concomitant]
     Route: 065
  13. METOPROLOL [Concomitant]
     Route: 065
  14. LISINOPRIL [Concomitant]
     Route: 065

REACTIONS (5)
  - ARTHRALGIA [None]
  - BACK PAIN [None]
  - HEART RATE INCREASED [None]
  - MYALGIA [None]
  - OESOPHAGEAL PAIN [None]
